FAERS Safety Report 4336386-6 (Version None)
Quarter: 2004Q2

REPORT INFORMATION
  Report Type: 
  Country: None (occurrence: None)
  Receive Date: 20040412
  Receipt Date: 20040401
  Transmission Date: 20050107
  Serious: Yes (Other)
  Sender: FDA-Public Use
  Company Number: PHNR2004AU00850

PATIENT
  Age: 29 Year
  Sex: Male

DRUGS (3)
  1. CLOZARIL [Suspect]
     Indication: SCHIZOPHRENIA
     Dosage: 200 MG MANE + 200 MG NOCTE
     Route: 048
     Dates: start: 20020121, end: 20040322
  2. CLOZARIL [Suspect]
     Dosage: 200 MG MANE + 300 MG NOCTE
     Route: 048
     Dates: start: 20040323
  3. VALPROIC ACID [Concomitant]
     Indication: CONVULSION
     Dosage: 500 MG, BID

REACTIONS (6)
  - ANTIPSYCHOTIC DRUG LEVEL BELOW THERAPEUTIC [None]
  - DYSARTHRIA [None]
  - DYSKINESIA [None]
  - EXTRAPYRAMIDAL DISORDER [None]
  - GAIT DISTURBANCE [None]
  - SOMNOLENCE [None]
